FAERS Safety Report 24801523 (Version 1)
Quarter: 2025Q1

REPORT INFORMATION
  Report Type: Spontaneous
  Country: US (occurrence: US)
  Receive Date: 20250102
  Receipt Date: 20250102
  Transmission Date: 20250408
  Serious: Yes (Death)
  Sender: LUNDBECK
  Company Number: US-LUNDBECK-DKLU4008623

PATIENT

DRUGS (2)
  1. SABRIL [Suspect]
     Active Substance: VIGABATRIN
     Indication: Lennox-Gastaut syndrome
     Dosage: 800 MILLIGRAM
     Route: 048
     Dates: start: 201608
  2. EPIDIOLEX [Concomitant]
     Active Substance: CANNABIDIOL
     Indication: Product used for unknown indication
     Route: 048

REACTIONS (1)
  - Death [Fatal]
